FAERS Safety Report 4673756-0 (Version None)
Quarter: 2005Q2

REPORT INFORMATION
  Report Type: 
  Country: None (occurrence: None)
  Receive Date: 20050524
  Receipt Date: 20050511
  Transmission Date: 20051028
  Serious: Yes (Disabling)
  Sender: FDA-Public Use
  Company Number: WAES 0503USA00870

PATIENT
  Age: 57 Year
  Sex: Male

DRUGS (7)
  1. CRIXIVAN [Suspect]
     Indication: HIV INFECTION
     Dosage: SEE IMAGE
     Route: 048
     Dates: start: 19970304, end: 20010616
  2. CRIXIVAN [Suspect]
     Indication: HIV INFECTION
     Dosage: SEE IMAGE
     Route: 048
     Dates: start: 20010621, end: 20040206
  3. CRIXIVAN [Suspect]
     Indication: HIV INFECTION
     Dosage: SEE IMAGE
     Route: 048
     Dates: start: 20010621, end: 20050120
  4. EPIVIR [Concomitant]
  5. RETROVIR [Suspect]
     Indication: HIV INFECTION
     Dosage: SEE IMAGE
     Dates: start: 19960801, end: 19971225
  6. RETROVIR [Suspect]
     Indication: HIV INFECTION
     Dosage: SEE IMAGE
     Dates: start: 19971216, end: 20010616
  7. RETROVIR [Suspect]
     Indication: HIV INFECTION
     Dosage: SEE IMAGE
     Dates: start: 20010621, end: 20040206

REACTIONS (2)
  - BLOOD TRIGLYCERIDES INCREASED [None]
  - MUSCLE ATROPHY [None]
